FAERS Safety Report 4317520-0 (Version None)
Quarter: 2004Q1

REPORT INFORMATION
  Report Type: 
  Country: None (occurrence: None)
  Receive Date: 20040312
  Receipt Date: 20040226
  Transmission Date: 20041129
  Serious: Yes (Other)
  Sender: FDA-Public Use
  Company Number: 200401443

PATIENT
  Sex: Female

DRUGS (2)
  1. RESTASIS 0.05% [Suspect]
     Indication: KERATOCONJUNCTIVITIS SICCA
     Dosage: 2 DROP BID EYE
  2. ARTIFICIAL TEARS [Concomitant]

REACTIONS (6)
  - ACTIVITIES OF DAILY LIVING IMPAIRED [None]
  - CONJUNCTIVAL DISORDER [None]
  - CORNEAL SCAR [None]
  - IMPAIRED DRIVING ABILITY [None]
  - PEMPHIGOID [None]
  - VISUAL ACUITY REDUCED [None]
